FAERS Safety Report 18899248 (Version 3)
Quarter: 2023Q2

REPORT INFORMATION
  Report Type: Spontaneous
  Country: RO (occurrence: None)
  Receive Date: 20210216
  Receipt Date: 20230607
  Transmission Date: 20230722
  Serious: Yes (Hospitalization, Other)
  Sender: FDA-Public Use
  Company Number: 2021A049379

PATIENT
  Age: 64 Year
  Sex: Female

DRUGS (6)
  1. DURVALUMAB [Suspect]
     Active Substance: DURVALUMAB
     Indication: Non-small cell lung cancer stage III
     Dosage: 10 MG / KG IS INITIATED EVERY 2 WEEKS
     Route: 042
     Dates: start: 202009, end: 20221025
  2. PACLITAXEL [Concomitant]
     Active Substance: PACLITAXEL
     Dosage: 50 MG / M2
  3. PACLITAXEL [Concomitant]
     Active Substance: PACLITAXEL
     Dosage: PACLITAXEL 200 MG / M2
  4. PACLITAXEL [Concomitant]
     Active Substance: PACLITAXEL
     Dosage: 50 MG / M2 AND CARBOPLATIN AUC 2 WEEKLY, 4 SERIES,
     Dates: start: 202006, end: 202008
  5. CARBOPLATIN [Concomitant]
     Active Substance: CARBOPLATIN
     Dosage: AUC 2 WEEKLY, 4 SERIES
  6. CARBOPLATIN [Concomitant]
     Active Substance: CARBOPLATIN
     Dosage: AUC 6

REACTIONS (4)
  - Enterobacter infection [Recovered/Resolved]
  - COVID-19 [Unknown]
  - Staphylococcal infection [Unknown]
  - Serratia infection [Unknown]

NARRATIVE: CASE EVENT DATE: 20221104
